FAERS Safety Report 17914883 (Version 3)
Quarter: 2020Q3

REPORT INFORMATION
  Report Type: Spontaneous
  Country: US (occurrence: US)
  Receive Date: 20200618
  Receipt Date: 20200904
  Transmission Date: 20201103
  Serious: No
  Sender: FDA-Public Use
  Company Number: US-ELI_LILLY_AND_COMPANY-US202006008008

PATIENT
  Sex: Female

DRUGS (2)
  1. CYMBALTA [Suspect]
     Active Substance: DULOXETINE HYDROCHLORIDE
     Indication: PRODUCT USED FOR UNKNOWN INDICATION
     Dosage: UNK, UNKNOWN
     Route: 065
     Dates: start: 20090407
  2. HUMALOG [Concomitant]
     Active Substance: INSULIN LISPRO
     Indication: TYPE 1 DIABETES MELLITUS

REACTIONS (2)
  - Headache [Unknown]
  - Blood glucose increased [Unknown]
